FAERS Safety Report 5077943-1 (Version None)
Quarter: 2006Q3

REPORT INFORMATION
  Report Type: 
  Country: None (occurrence: None)
  Receive Date: 20060808
  Receipt Date: 20060802
  Transmission Date: 20061208
  Serious: No
  Sender: FDA-Public Use
  Company Number: E2020-00320-SPO-DE

PATIENT
  Sex: Female

DRUGS (1)
  1. ARICEPT [Suspect]
     Dosage: ORAL
     Route: 048

REACTIONS (1)
  - ANGIONEUROTIC OEDEMA [None]
